FAERS Safety Report 19218641 (Version 2)
Quarter: 2021Q4

REPORT INFORMATION
  Report Type: Spontaneous
  Country: US (occurrence: US)
  Receive Date: 20210505
  Receipt Date: 20211115
  Transmission Date: 20220303
  Serious: Yes (Life-Threatening, Hospitalization)
  Sender: FDA-Public Use
  Company Number: US-LUPIN PHARMACEUTICALS INC.-2021-06075

PATIENT
  Age: 14 Year
  Sex: Female

DRUGS (3)
  1. LORAZEPAM [Suspect]
     Active Substance: LORAZEPAM
     Indication: Anticholinergic syndrome
     Dosage: 10 MILLIGRAM (BEFORE ADMISSION)
     Route: 065
  2. LORAZEPAM [Suspect]
     Active Substance: LORAZEPAM
     Dosage: 6 MILLIGRAM (IN THE EMERGENCY DEPARTMENT)
     Route: 065
  3. DIPHENHYDRAMINE [Concomitant]
     Active Substance: DIPHENHYDRAMINE
     Indication: Product used for unknown indication
     Dosage: UNK (PATIENT INGESTED 100 TABLETS OF DIPHENHYDRAMINE)
     Route: 048

REACTIONS (1)
  - Therapy non-responder [Unknown]
